FAERS Safety Report 12550671 (Version 1)
Quarter: 2016Q3

REPORT INFORMATION
  Report Type: Spontaneous
  Country: CN (occurrence: CN)
  Receive Date: 20160712
  Receipt Date: 20160712
  Transmission Date: 20161109
  Serious: Yes (Other)
  Sender: FDA-Public Use
  Company Number: CN-TAKEDA-2016MPI006231

PATIENT
  Age: 57 Year
  Sex: Male

DRUGS (20)
  1. DEXAMETHASONE. [Suspect]
     Active Substance: DEXAMETHASONE
     Indication: PLASMA CELL LEUKAEMIA
     Dosage: UNK
     Route: 065
     Dates: start: 20070223
  2. DEXAMETHASONE. [Suspect]
     Active Substance: DEXAMETHASONE
     Dosage: UNK
     Route: 065
     Dates: start: 20081023
  3. VINDESINE [Suspect]
     Active Substance: VINDESINE
     Dosage: UNK
     Route: 065
     Dates: start: 20070724
  4. FLUDARABINE [Suspect]
     Active Substance: FLUDARABINE PHOSPHATE
     Dosage: UNK
     Route: 065
     Dates: start: 20070412
  5. VELCADE [Suspect]
     Active Substance: BORTEZOMIB
     Indication: PLASMA CELL LEUKAEMIA
     Dosage: UNK
     Route: 065
     Dates: start: 20070223
  6. VINDESINE [Suspect]
     Active Substance: VINDESINE
     Dosage: UNK
     Route: 065
     Dates: start: 20081023
  7. VELCADE [Suspect]
     Active Substance: BORTEZOMIB
     Dosage: UNK
     Route: 065
     Dates: start: 20070412
  8. DEXAMETHASONE. [Suspect]
     Active Substance: DEXAMETHASONE
     Dosage: UNK
     Route: 065
     Dates: start: 20070412
  9. FLUDARABINE [Suspect]
     Active Substance: FLUDARABINE PHOSPHATE
     Dosage: UNK
     Route: 065
     Dates: start: 20081023
  10. DEXAMETHASONE. [Suspect]
     Active Substance: DEXAMETHASONE
     Dosage: UNK
     Route: 065
     Dates: start: 20070724
  11. VELCADE [Suspect]
     Active Substance: BORTEZOMIB
     Dosage: UNK
     Route: 065
     Dates: start: 20070724
  12. EPIRUBICIN [Suspect]
     Active Substance: EPIRUBICIN
     Indication: PLASMA CELL LEUKAEMIA
     Dosage: UNK
     Route: 065
     Dates: start: 20070223
  13. VINDESINE [Suspect]
     Active Substance: VINDESINE
     Dosage: UNK
     Route: 065
     Dates: start: 20070412
  14. FLUDARABINE [Suspect]
     Active Substance: FLUDARABINE PHOSPHATE
     Indication: PLASMA CELL LEUKAEMIA
     Dosage: UNK
     Route: 065
     Dates: start: 20070223
  15. VINDESINE [Suspect]
     Active Substance: VINDESINE
     Indication: PLASMA CELL LEUKAEMIA
     Dosage: UNK
     Route: 065
     Dates: start: 20070223
  16. EPIRUBICIN [Suspect]
     Active Substance: EPIRUBICIN
     Dosage: UNK
     Route: 065
     Dates: start: 20081023
  17. VELCADE [Suspect]
     Active Substance: BORTEZOMIB
     Dosage: UNK
     Route: 065
     Dates: start: 20081023
  18. EPIRUBICIN [Suspect]
     Active Substance: EPIRUBICIN
     Dosage: UNK
     Route: 065
     Dates: start: 20070412
  19. EPIRUBICIN [Suspect]
     Active Substance: EPIRUBICIN
     Dosage: UNK
     Route: 065
     Dates: start: 20070724
  20. FLUDARABINE [Suspect]
     Active Substance: FLUDARABINE PHOSPHATE
     Dosage: UNK
     Route: 065
     Dates: start: 20070724

REACTIONS (4)
  - Gastrointestinal disorder [Recovering/Resolving]
  - Paraesthesia [Recovering/Resolving]
  - White blood cell count decreased [Recovered/Resolved]
  - Herpes zoster [Recovering/Resolving]
